FAERS Safety Report 5207945-3 (Version None)
Quarter: 2007Q1

REPORT INFORMATION
  Report Type: 
  Country: None (occurrence: None)
  Receive Date: 20070115
  Receipt Date: 20070108
  Transmission Date: 20070707
  Serious: Yes (Hospitalization, Other)
  Sender: FDA-Public Use
  Company Number: US-ELI_LILLY_AND_COMPANY-US200602003308

PATIENT
  Age: 50 Year
  Sex: Female
  Weight: 131.52 kg

DRUGS (20)
  1. FLUOXETINE                              /N/A/ [Concomitant]
     Dosage: 40 MG, DAILY (1/D)
     Dates: start: 20010327
  2. PREMPRO [Concomitant]
     Dosage: 0.625 UNK, UNK
     Dates: end: 20030923
  3. PROMETHAZINE W/CODEINE ^PHARM BASIC^ [Concomitant]
     Dates: start: 20031016, end: 20031019
  4. LIPITOR [Concomitant]
     Dosage: UNK, UNK
     Route: 048
     Dates: start: 20010101, end: 20040101
  5. ZYPREXA [Suspect]
     Indication: SCHIZOAFFECTIVE DISORDER
     Dosage: 25 MG, DAILY (1/D)
     Dates: start: 20011203, end: 20020201
  6. ZYPREXA [Suspect]
     Dosage: 20 MG, DAILY (1/D)
     Dates: start: 20020108, end: 20030126
  7. ZYPREXA [Suspect]
     Dosage: 25 MG, UNK
     Dates: start: 20030127, end: 20030312
  8. ZYPREXA [Suspect]
     Dosage: 35 MG, UNK
     Dates: start: 20030313, end: 20030426
  9. ZYPREXA [Suspect]
     Dosage: 30 MG, UNK
     Dates: start: 20030427, end: 20030818
  10. ZYPREXA [Suspect]
     Dosage: 25 MG, UNK
     Dates: start: 20030819, end: 20031113
  11. ZYPREXA [Suspect]
     Dosage: 10 MG, DAILY (1/D)
     Dates: start: 20031114, end: 20040121
  12. ZYPREXA [Suspect]
     Dosage: 20 MG, UNK
     Dates: start: 20040122, end: 20040410
  13. ZYPREXA [Suspect]
     Dosage: 25 MG, UNK
     Dates: start: 20040411, end: 20040504
  14. ZYPREXA [Suspect]
     Dosage: 30 MG, UNK
     Dates: start: 20040505, end: 20040616
  15. ZYPREXA [Suspect]
     Dosage: 20 MG, DAILY (1/D)
     Dates: start: 20040617, end: 20040818
  16. ZYPREXA [Suspect]
     Dosage: 30 MG, UNK
     Dates: start: 20040819, end: 20040913
  17. ZYPREXA [Suspect]
     Dosage: 20 MG, UNK
     Dates: start: 20040914, end: 20050719
  18. ZYPREXA [Suspect]
     Dosage: 15 MG, DAILY (1/D)
     Dates: start: 20050720, end: 20060101
  19. ZYPREXA [Suspect]
     Dosage: 5 MG, UNK
     Dates: start: 20060102
  20. ZYPREXA [Suspect]
     Dosage: 10 MG, DAILY (1/D)
     Dates: start: 19980101, end: 20011202

REACTIONS (15)
  - ACUTE RESPIRATORY FAILURE [None]
  - ASTHENIA [None]
  - BLOOD CHOLESTEROL INCREASED [None]
  - BLOOD TRIGLYCERIDES INCREASED [None]
  - COR PULMONALE [None]
  - DIABETES MELLITUS NON-INSULIN-DEPENDENT [None]
  - EYE IRRITATION [None]
  - HEPATIC STEATOSIS [None]
  - HYPERGLYCAEMIA [None]
  - PAIN IN EXTREMITY [None]
  - PRESCRIBED OVERDOSE [None]
  - SLEEP APNOEA SYNDROME [None]
  - THIRST [None]
  - VISION BLURRED [None]
  - WEIGHT INCREASED [None]
